FAERS Safety Report 6983564-3 (Version None)
Quarter: 2010Q3

REPORT INFORMATION
  Report Type: 
  Country: None (occurrence: None)
  Receive Date: 20100914
  Receipt Date: 20081007
  Transmission Date: 20110219
  Serious: No
  Sender: FDA-Public Use
  Company Number: US-WYE-H06317508

PATIENT
  Age: 56 Year
  Sex: Male
  Weight: 81.72 kg

DRUGS (3)
  1. ADVIL LIQUI-GELS [Suspect]
     Indication: ANALGESIC THERAPY
     Route: 048
     Dates: start: 20080901
  2. ACETYLSALICYLIC ACID [Concomitant]
  3. LIPITOR [Concomitant]

REACTIONS (1)
  - FAECES DISCOLOURED [None]
